FAERS Safety Report 11986351 (Version 2)
Quarter: 2016Q2

REPORT INFORMATION
  Report Type: Spontaneous
  Country: US (occurrence: US)
  Receive Date: 20160202
  Receipt Date: 20160429
  Transmission Date: 20160815
  Serious: No
  Sender: FDA-Public Use
  Company Number: US-GLENMARK PHARMACEUTICALS INC, USA.-2015GMK021119

PATIENT

DRUGS (1)
  1. TELMISARTAN TABLETS [Suspect]
     Active Substance: TELMISARTAN
     Dosage: 40 MG, OD
     Route: 048
     Dates: start: 201509

REACTIONS (3)
  - Hypertension [Recovered/Resolved]
  - Product substitution issue [Unknown]
  - Drug ineffective [Unknown]

NARRATIVE: CASE EVENT DATE: 201509
